FAERS Safety Report 9542010 (Version 3)
Quarter: 2013Q4

REPORT INFORMATION
  Report Type: Report from Study
  Country: US (occurrence: US)
  Receive Date: 20130923
  Receipt Date: 20131223
  Transmission Date: 20140711
  Serious: Yes (Other)
  Sender: FDA-Public Use
  Company Number: US-JNJFOC-20130909024

PATIENT
  Age: 62 Year
  Sex: Female
  Weight: 64.41 kg

DRUGS (14)
  1. SIMPONI [Suspect]
     Indication: RHEUMATOID ARTHRITIS
     Route: 058
  2. SIMPONI [Suspect]
     Indication: RHEUMATOID ARTHRITIS
     Route: 058
     Dates: start: 20130129, end: 201309
  3. SIMPONI [Suspect]
     Indication: RHEUMATOID ARTHRITIS
     Route: 058
     Dates: start: 201309
  4. IBUPROFEN [Concomitant]
     Indication: PAIN
     Route: 065
  5. METHOTREXATE [Concomitant]
     Indication: RHEUMATOID ARTHRITIS
     Route: 065
  6. LISINOPRIL [Concomitant]
     Indication: BLOOD PRESSURE
     Route: 065
  7. OMEPRAZOLE [Concomitant]
     Indication: GASTROOESOPHAGEAL REFLUX DISEASE
     Route: 065
  8. FOLIC ACID [Concomitant]
     Indication: PRODUCT USED FOR UNKNOWN INDICATION
     Route: 065
  9. VITAMIN B [Concomitant]
     Route: 065
  10. VITAMIN C [Concomitant]
     Route: 065
  11. VITAMIN D [Concomitant]
     Indication: ABNORMAL FAECES
     Route: 065
  12. PHENOBARB [Concomitant]
     Indication: IRRITABLE BOWEL SYNDROME
     Route: 065
  13. CHOLESTEROL [Concomitant]
     Route: 065
  14. PREDNISONE [Concomitant]
     Indication: PAIN
     Route: 065

REACTIONS (8)
  - Urinary tract infection [Recovered/Resolved]
  - Dizziness [Unknown]
  - Alopecia [Not Recovered/Not Resolved]
  - Feeling abnormal [Unknown]
  - Cough [Not Recovered/Not Resolved]
  - Headache [Not Recovered/Not Resolved]
  - Rheumatoid arthritis [Unknown]
  - Nausea [Not Recovered/Not Resolved]
